FAERS Safety Report 24937248 (Version 1)
Quarter: 2025Q1

REPORT INFORMATION
  Report Type: Report from Study
  Country: US (occurrence: US)
  Receive Date: 20250206
  Receipt Date: 20250206
  Transmission Date: 20250409
  Serious: Yes (Other)
  Sender: BAYER HEALTHCARE PHARMACEUTICALS INC.
  Company Number: US-BAYER-2024A183423

PATIENT
  Age: 48 Year
  Sex: Female

DRUGS (8)
  1. STIVARGA [Suspect]
     Active Substance: REGORAFENIB MONOHYDRATE
     Indication: Colon cancer
     Dosage: 160 MG, QD  FOR 21 DAYS, FOLLOWED BY 7 DAYS OFF
     Route: 048
     Dates: start: 20241216, end: 20250122
  2. STIVARGA [Suspect]
     Active Substance: REGORAFENIB MONOHYDRATE
     Indication: Rectal cancer
  3. PROTONIX [Concomitant]
     Active Substance: PANTOPRAZOLE SODIUM
  4. DILAUDID [Concomitant]
     Active Substance: HYDROMORPHONE HYDROCHLORIDE
  5. GABAPENTIN [Concomitant]
     Active Substance: GABAPENTIN
  6. VITAMIN D [Concomitant]
     Active Substance: VITAMIN D NOS
  7. ASPIRIN [Concomitant]
     Active Substance: ASPIRIN
  8. METHADONE HYDROCHLORIDE [Concomitant]
     Active Substance: METHADONE HYDROCHLORIDE

REACTIONS (4)
  - Oncologic complication [Not Recovered/Not Resolved]
  - Lung disorder [Not Recovered/Not Resolved]
  - Decreased appetite [Unknown]
  - Taste disorder [Unknown]

NARRATIVE: CASE EVENT DATE: 20240101
